FAERS Safety Report 9882411 (Version 1)
Quarter: 2014Q1

REPORT INFORMATION
  Report Type: Spontaneous
  Country: CO (occurrence: CO)
  Receive Date: 20140207
  Receipt Date: 20140207
  Transmission Date: 20141002
  Serious: Yes (Other)
  Sender: FDA-Public Use
  Company Number: CO-PFIZER INC-2014035619

PATIENT
  Age: 59 Year
  Sex: Male

DRUGS (1)
  1. CARDURAN [Suspect]
     Indication: PROSTATOMEGALY
     Dosage: 4 MG, 1X/DAY
     Route: 048
     Dates: start: 2003, end: 20130422

REACTIONS (1)
  - Prostate cancer [Unknown]
